FAERS Safety Report 11596404 (Version 2)
Quarter: 2015Q4

REPORT INFORMATION
  Report Type: Spontaneous
  Country: PL (occurrence: PL)
  Receive Date: 20151006
  Receipt Date: 20151014
  Transmission Date: 20160304
  Serious: Yes (Other)
  Sender: FDA-Public Use
  Company Number: PL-NOVOPROD-465505

PATIENT
  Age: 85 Year
  Sex: Female
  Weight: 54 kg

DRUGS (4)
  1. MIXTARD 30 HM PENFILL [Suspect]
     Active Substance: INSULIN HUMAN
     Dosage: 18 U, QD (18 UNITS MORNING)
     Route: 065
  2. MIXTARD 30 HM PENFILL [Suspect]
     Active Substance: INSULIN HUMAN
     Dosage: 18 U, QD (14 UNITS BEFORE BREAKFAST AND 4 UNITS BEFORE THE EVENING MEAL)
     Route: 065
  3. MIXTARD 30 HM PENFILL [Suspect]
     Active Substance: INSULIN HUMAN
     Dosage: 22 U, QD (14 U IN THE MORNING)
     Route: 065
  4. MIXTARD 30 HM PENFILL [Suspect]
     Active Substance: INSULIN HUMAN
     Indication: TYPE 2 DIABETES MELLITUS
     Dosage: 22 U, QD (14 UNITS BEFORE BREAKFAST AND 8 UNITS BEFORE THE EVENING MEAL)
     Route: 065
     Dates: start: 201309, end: 201506

REACTIONS (3)
  - Hyperglycaemia [Unknown]
  - Ischaemic stroke [Unknown]
  - Weight increased [Unknown]

NARRATIVE: CASE EVENT DATE: 2013
